FAERS Safety Report 8547947-2 (Version None)
Quarter: 2012Q3

REPORT INFORMATION
  Report Type: 
  Country: None (occurrence: None)
  Receive Date: 20120729
  Receipt Date: 20110819
  Transmission Date: 20120928
  Serious: Yes (Hospitalization)
  Sender: FDA-Public Use
  Company Number: US-BAYER-201039504NA

PATIENT
  Age: 28 Year
  Sex: Female
  Weight: 73 kg

DRUGS (9)
  1. YASMIN [Suspect]
     Indication: CONTRACEPTION
     Dosage: UNK UNK, PRN
     Route: 048
     Dates: start: 20040101, end: 20080101
  2. NSAID'S [Concomitant]
     Route: 065
     Dates: start: 19960101
  3. ANTIBIOTICS [Concomitant]
     Route: 065
     Dates: start: 19960101
  4. DYAZIDE [Concomitant]
     Dosage: UNK
     Dates: start: 20080318
  5. YAZ [Suspect]
     Indication: CONTRACEPTION
     Dosage: UNK UNK, PRN
     Route: 048
     Dates: start: 20040101, end: 20080101
  6. IBUPROFEN [Concomitant]
     Indication: PAIN
     Route: 065
  7. TRIAMTERENE [Concomitant]
     Indication: HYPERTENSION
     Route: 065
     Dates: start: 20040101
  8. TRIAMTERENE AND HYDROCHLOROTHIAZIDE [Concomitant]
     Route: 048
  9. HYDROCHLOROTHIAZIDE [Concomitant]
     Route: 065

REACTIONS (3)
  - PAIN IN EXTREMITY [None]
  - DEEP VEIN THROMBOSIS [None]
  - SWELLING [None]
